FAERS Safety Report 11345452 (Version 3)
Quarter: 2016Q2

REPORT INFORMATION
  Report Type: Report from Study
  Country: KR (occurrence: KR)
  Receive Date: 20150806
  Receipt Date: 20160520
  Transmission Date: 20160815
  Serious: Yes (Hospitalization)
  Sender: FDA-Public Use
  Company Number: KR-BAYER-2015-180167

PATIENT
  Sex: Male

DRUGS (1)
  1. BETAFERON [Suspect]
     Active Substance: INTERFERON BETA-1B
     Indication: MULTIPLE SCLEROSIS
     Dosage: 1 ML, QOD
     Route: 058
     Dates: start: 20111226, end: 201604

REACTIONS (6)
  - Fatigue [None]
  - Hypophagia [Recovering/Resolving]
  - Gastritis [Recovering/Resolving]
  - Cognitive disorder [None]
  - Liver function test increased [Not Recovered/Not Resolved]
  - Hepatitis C antibody positive [None]

NARRATIVE: CASE EVENT DATE: 2016
